FAERS Safety Report 8308418-1 (Version None)
Quarter: 2012Q2

REPORT INFORMATION
  Report Type: 
  Country: None (occurrence: None)
  Receive Date: 20120424
  Receipt Date: 20120419
  Transmission Date: 20120825
  Serious: Yes (Life-Threatening, Hospitalization)
  Sender: FDA-Public Use
  Company Number: FI-MERCK-1204USA02860

PATIENT
  Age: 49 Year
  Sex: Male

DRUGS (5)
  1. PRIMAXIN [Suspect]
     Indication: PANCREATITIS
     Route: 041
     Dates: start: 20120101, end: 20120101
  2. PRIMASPAN [Concomitant]
     Route: 048
     Dates: start: 20100928, end: 20120111
  3. DIFORMIN RETARD [Concomitant]
     Indication: DIABETES MELLITUS
     Route: 048
     Dates: start: 20100928, end: 20120117
  4. JANUVIA [Suspect]
     Indication: DIABETES MELLITUS
     Route: 048
     Dates: start: 20110426, end: 20120115
  5. RAMIPRIL [Concomitant]
     Indication: HYPERTENSION
     Route: 048
     Dates: start: 20100928

REACTIONS (3)
  - PANCREATITIS [None]
  - HAEMANGIOMA OF LIVER [None]
  - PANCREATIC PSEUDOCYST [None]
